FAERS Safety Report 24249172 (Version 4)
Quarter: 2025Q3

REPORT INFORMATION
  Report Type: Report from Study
  Country: JP (occurrence: JP)
  Receive Date: 20240826
  Receipt Date: 20250725
  Transmission Date: 20251020
  Serious: Yes (Hospitalization)
  Sender: PFIZER
  Company Number: JP-PFIZER INC-PV202400078779

PATIENT
  Age: 62 Year
  Sex: Male
  Weight: 70.2 kg

DRUGS (23)
  1. ELRANATAMAB [Suspect]
     Active Substance: ELRANATAMAB
     Indication: Plasma cell myeloma refractory
     Route: 058
     Dates: start: 20240612, end: 20240612
  2. ELRANATAMAB [Suspect]
     Active Substance: ELRANATAMAB
     Route: 058
     Dates: start: 20240617, end: 20240617
  3. ELRANATAMAB [Suspect]
     Active Substance: ELRANATAMAB
     Route: 058
     Dates: start: 20240621, end: 20240621
  4. ELRANATAMAB [Suspect]
     Active Substance: ELRANATAMAB
     Route: 058
  5. ELRANATAMAB [Suspect]
     Active Substance: ELRANATAMAB
     Route: 058
  6. ELRANATAMAB [Suspect]
     Active Substance: ELRANATAMAB
     Route: 058
     Dates: start: 20240717, end: 20240717
  7. CALCIUM CARBONATE [Concomitant]
     Active Substance: CALCIUM CARBONATE
     Dosage: 2 DF, 3X/DAY
  8. LANTHANUM CARBONATE [Concomitant]
     Active Substance: LANTHANUM CARBONATE
     Dosage: 1 DF, 3X/DAY, SACHET
  9. ATORVASTATIN CALCIUM [Concomitant]
     Active Substance: ATORVASTATIN CALCIUM
     Dosage: 1 DF, 1X/DAY ^TOWA^
  10. BISOPROLOL FUMARATE [Concomitant]
     Active Substance: BISOPROLOL FUMARATE
     Dosage: 1 DF, 1X/DAY
  11. ONEALFA [Concomitant]
     Active Substance: ALFACALCIDOL
     Dosage: 1 DF, 1X/DAY
  12. POLAPREZINC [Concomitant]
     Active Substance: POLAPREZINC
     Dosage: 1 DF, 2X/DAY ^SAWAI^
  13. AZILSARTAN KAMEDOXOMIL [Concomitant]
     Active Substance: AZILSARTAN KAMEDOXOMIL
     Dosage: 1 DF, 1X/DAY
  14. LOKELMA [Concomitant]
     Active Substance: SODIUM ZIRCONIUM CYCLOSILICATE
     Dosage: 1 DF, 1X/DAY, POWDER FOR SUSPENSION, SACHET, ON A NON-DIALYSIS DAY
  15. AMLODIPINE BESYLATE [Concomitant]
     Active Substance: AMLODIPINE BESYLATE
     Dosage: 1 DF, 1X/DAY ON A NON-DIALYSIS DAY
  16. AMLODIPINE BESYLATE [Concomitant]
     Active Substance: AMLODIPINE BESYLATE
     Dosage: 1 DF, 1X/DAY ON A DIALYSIS DAY
  17. ZOVIRAX [Concomitant]
     Active Substance: ACYCLOVIR
     Dosage: 1 DF, 1X/DAY
  18. ATOVAQUONE [Concomitant]
     Active Substance: ATOVAQUONE
     Dosage: 2 DF, 5 ML SACHET, 1X/DAY
  19. DOXAZOSINE [DOXAZOSIN MESILATE] [Concomitant]
     Dosage: 2 DF, 1X/DAY ^TOWA^
  20. CALONAL [Concomitant]
     Active Substance: ACETAMINOPHEN
  21. CALONAL [Concomitant]
     Active Substance: ACETAMINOPHEN
  22. DECADRON [Concomitant]
     Active Substance: DEXAMETHASONE
  23. DIPHENHYDRAMINE [Concomitant]
     Active Substance: DIPHENHYDRAMINE

REACTIONS (2)
  - Immune effector cell-associated neurotoxicity syndrome [Recovering/Resolving]
  - Cytokine release syndrome [Recovering/Resolving]

NARRATIVE: CASE EVENT DATE: 20240614
